FAERS Safety Report 5950357-5 (Version None)
Quarter: 2008Q4

REPORT INFORMATION
  Report Type: 
  Country: None (occurrence: None)
  Receive Date: 20081112
  Receipt Date: 20081105
  Transmission Date: 20090506
  Serious: Yes (Hospitalization)
  Sender: FDA-Public Use
  Company Number: PHHY2008JP27543

PATIENT
  Sex: Male
  Weight: 71 kg

DRUGS (5)
  1. DIOVAN [Suspect]
     Indication: HYPERTENSION
     Dosage: 160 MG, QD
     Route: 048
     Dates: start: 20070921, end: 20080530
  2. ATELEC [Concomitant]
     Indication: HYPERTENSION
     Dosage: UNK
     Route: 048
     Dates: start: 20071121, end: 20080530
  3. FLUITRAN [Concomitant]
     Indication: HYPERTENSION
     Dosage: UNK
     Route: 048
     Dates: end: 20080530
  4. RABEPRAZOLE SODIUM [Concomitant]
     Dosage: UNK
     Route: 048
     Dates: start: 20070921, end: 20080530
  5. CRESTOR [Concomitant]
     Dosage: UNK
     Dates: start: 20071019, end: 20080530

REACTIONS (1)
  - SUBARACHNOID HAEMORRHAGE [None]
